FAERS Safety Report 16118047 (Version 2)
Quarter: 2019Q2

REPORT INFORMATION
  Report Type: Spontaneous
  Country: IL (occurrence: IL)
  Receive Date: 20190326
  Receipt Date: 20190516
  Transmission Date: 20190711
  Serious: Yes (Other)
  Sender: FDA-Public Use
  Company Number: IL-TEVA-2019-IL-1029282

PATIENT
  Age: 16 Year
  Sex: Male

DRUGS (3)
  1. PROGRAF [Suspect]
     Active Substance: TACROLIMUS\TACROLIMUS ANHYDROUS
     Route: 048
  2. CELLCEPT [Concomitant]
     Active Substance: MYCOPHENOLATE MOFETIL\MYCOPHENOLATE MOFETIL HYDROCHLORIDE
  3. URSOLIT [Concomitant]

REACTIONS (16)
  - Hypersensitivity [Not Recovered/Not Resolved]
  - Lip swelling [Not Recovered/Not Resolved]
  - Swelling face [Not Recovered/Not Resolved]
  - Drug hypersensitivity [Not Recovered/Not Resolved]
  - Pruritus [Not Recovered/Not Resolved]
  - Drug level fluctuating [Not Recovered/Not Resolved]
  - Pharyngitis streptococcal [Unknown]
  - Viral infection [Recovered/Resolved]
  - Angioedema [Unknown]
  - Constipation [Unknown]
  - Diarrhoea [Recovered/Resolved]
  - Headache [Recovering/Resolving]
  - Rash [Not Recovered/Not Resolved]
  - Eructation [Not Recovered/Not Resolved]
  - Abdominal pain [Not Recovered/Not Resolved]
  - Lactose intolerance [Unknown]

NARRATIVE: CASE EVENT DATE: 2019
